FAERS Safety Report 9646465 (Version 1)
Quarter: 2013Q4

REPORT INFORMATION
  Report Type: Report from Study
  Country: CA (occurrence: CA)
  Receive Date: 20131025
  Receipt Date: 20131025
  Transmission Date: 20140711
  Serious: Yes (Other)
  Sender: FDA-Public Use
  Company Number: CA-ABBVIE-13P-028-1159756-00

PATIENT
  Sex: Female
  Weight: 65.83 kg

DRUGS (5)
  1. HUMIRA [Suspect]
     Indication: CROHN^S DISEASE
     Dosage: LATEST HUMIRA DOSE: 10 OCT 2013
     Route: 058
     Dates: start: 20121207
  2. HUMIRA [Suspect]
     Indication: FISTULA
  3. METHOTREXATE [Concomitant]
     Indication: CROHN^S DISEASE
     Route: 048
     Dates: start: 201212
  4. METHOTREXATE [Concomitant]
     Indication: FISTULA
  5. FOLIC ACID [Concomitant]
     Indication: VITAMIN SUPPLEMENTATION
     Route: 048
     Dates: start: 201212

REACTIONS (3)
  - Vaginal fistula [Recovered/Resolved]
  - Anxiety [Not Recovered/Not Resolved]
  - Insomnia [Not Recovered/Not Resolved]
